FAERS Safety Report 8603900-1 (Version None)
Quarter: 2012Q3

REPORT INFORMATION
  Report Type: 
  Country: None (occurrence: None)
  Receive Date: 20120820
  Receipt Date: 20120810
  Transmission Date: 20120928
  Serious: Yes (Other)
  Sender: FDA-Public Use
  Company Number: SI-AMGEN-SVNSP2012051488

PATIENT
  Age: 44 Year
  Sex: Male
  Weight: 82 kg

DRUGS (4)
  1. CRESTOR [Concomitant]
     Dosage: 20 MG, 1X/DAY
  2. ATACAND [Concomitant]
     Dosage: 5 MG, 1X/DAY
  3. TRAMADOL HCL [Concomitant]
     Dosage: 325 MG, AS NEEDED
  4. ENBREL [Suspect]
     Indication: ANKYLOSING SPONDYLITIS
     Dosage: 50 MG, WEEKLY
     Route: 058
     Dates: start: 20120403, end: 20120516

REACTIONS (1)
  - RENAL FAILURE CHRONIC [None]
